FAERS Safety Report 9147797 (Version 1)
Quarter: 2013Q1

REPORT INFORMATION
  Report Type: Spontaneous
  Country: IL (occurrence: IL)
  Receive Date: 20130307
  Receipt Date: 20130307
  Transmission Date: 20140127
  Serious: Yes (Hospitalization, Disabling, Other)
  Sender: FDA-Public Use
  Company Number: IL-B.I. PHARMACEUTICALS,INC./RIDGEFIELD-2013-AP-00181RI

PATIENT
  Age: 85 Year
  Sex: Female

DRUGS (7)
  1. PRADAXA [Suspect]
     Indication: CEREBROVASCULAR ACCIDENT PROPHYLAXIS
     Dosage: 220 MG
     Route: 048
     Dates: start: 201212
  2. PRADAXA [Suspect]
     Indication: ATRIAL FIBRILLATION
  3. PROCOR [Concomitant]
  4. FUSID [Concomitant]
  5. BETA BLOCKER [Concomitant]
  6. CIPRALEX [Concomitant]
  7. BONDORMIN [Concomitant]

REACTIONS (1)
  - Retinal ischaemia [Not Recovered/Not Resolved]
